FAERS Safety Report 7604647-0 (Version None)
Quarter: 2011Q3

REPORT INFORMATION
  Report Type: 
  Country: None (occurrence: None)
  Receive Date: 20110712
  Receipt Date: 20110629
  Transmission Date: 20111222
  Serious: Yes (Hospitalization, Other)
  Sender: FDA-Public Use
  Company Number: US-CELGENEUS-163-21880-11061298

PATIENT
  Sex: Male
  Weight: 93.3 kg

DRUGS (10)
  1. REVLIMID [Suspect]
     Indication: PROSTATE CANCER
     Dosage: 25 MILLIGRAM
     Route: 048
     Dates: start: 20101229, end: 20110517
  2. FINASTERIDE [Concomitant]
     Route: 065
  3. VANCOMYCIN [Concomitant]
     Route: 065
     Dates: start: 20110601
  4. AMLODIPINE BESYLATE [Concomitant]
     Route: 065
  5. WARFARIN SODIUM [Concomitant]
     Route: 065
  6. BENAZEPRIL HYDROCHLORIDE [Concomitant]
     Route: 065
  7. AVELOX [Concomitant]
     Route: 065
  8. ELIGARD [Concomitant]
     Route: 065
  9. CARDURA [Concomitant]
     Route: 065
  10. CASODEX [Concomitant]
     Route: 065

REACTIONS (3)
  - INTERNATIONAL NORMALISED RATIO INCREASED [None]
  - HAEMATURIA [None]
  - URINARY TRACT INFECTION [None]
